FAERS Safety Report 4316938-X (Version None)
Quarter: 2004Q1

REPORT INFORMATION
  Report Type: 
  Country: None (occurrence: None)
  Receive Date: 20040312
  Receipt Date: 20040303
  Transmission Date: 20041129
  Serious: Yes (Hospitalization)
  Sender: FDA-Public Use
  Company Number: 163-20785-04020085(0)

PATIENT
  Age: 83 Year
  Sex: Female

DRUGS (1)
  1. THALOMID [Suspect]
     Indication: MYELODYSPLASTIC SYNDROME
     Dosage: 100 MG, AT BEDTIME, ORAL
     Route: 048
     Dates: start: 20030922, end: 20040101

REACTIONS (2)
  - OSTEOPOROTIC FRACTURE [None]
  - SPINAL COMPRESSION FRACTURE [None]
